FAERS Safety Report 23824303 (Version 1)
Quarter: 2024Q2

REPORT INFORMATION
  Report Type: Spontaneous
  Country: US (occurrence: US)
  Receive Date: 20240507
  Receipt Date: 20240507
  Transmission Date: 20240716
  Serious: No
  Sender: FDA-Public Use
  Company Number: US-AMGEN-USASP2024088975

PATIENT
  Age: 64 Year
  Sex: Male

DRUGS (9)
  1. RITUXIMAB [Suspect]
     Active Substance: RITUXIMAB
     Indication: Acquired haemophilia
     Dosage: 375 MILLIGRAM/M^2 QWK (FOUR DOSES)
     Route: 065
  2. RITUXIMAB [Suspect]
     Active Substance: RITUXIMAB
     Indication: Immunosuppression
  3. COAGULATION FACTOR VIIA RECOMBINANT HUMAN [Concomitant]
     Active Substance: COAGULATION FACTOR VIIA RECOMBINANT HUMAN
     Indication: Acquired haemophilia
     Dosage: 90 MICROGRAM/KG (EVERY 2 TO 4 H)
     Route: 065
  4. PREDNISONE [Concomitant]
     Active Substance: PREDNISONE
     Indication: Immunosuppression
     Dosage: 1 MILLIGRAM/KILOGRAM, QD
     Route: 065
  5. PREDNISONE [Concomitant]
     Active Substance: PREDNISONE
     Indication: Acquired haemophilia
  6. CYCLOPHOSPHAMIDE [Concomitant]
     Active Substance: CYCLOPHOSPHAMIDE
     Indication: Immunosuppression
     Dosage: 100 MILLIGRAM, QD
     Route: 065
  7. CYCLOPHOSPHAMIDE [Concomitant]
     Active Substance: CYCLOPHOSPHAMIDE
     Indication: Acquired haemophilia
  8. EMICIZUMAB [Concomitant]
     Active Substance: EMICIZUMAB
     Indication: Acquired haemophilia
     Dosage: 3 MILLIGRAM/KILOGRAM (2-3WEEKLY)
     Route: 058
  9. EMICIZUMAB [Concomitant]
     Active Substance: EMICIZUMAB
     Dosage: 1.5 MILLIGRAM/KILOGRAM (EVERY 1 TO 3 WEEKS)
     Route: 058

REACTIONS (2)
  - Drug effective for unapproved indication [Unknown]
  - Off label use [Unknown]
